FAERS Safety Report 6525775-7 (Version None)
Quarter: 2010Q1

REPORT INFORMATION
  Report Type: 
  Country: None (occurrence: None)
  Receive Date: 20100104
  Receipt Date: 20090918
  Transmission Date: 20100710
  Serious: Yes (Disabling, Other)
  Sender: FDA-Public Use
  Company Number: US-BAYER-200933757NA

PATIENT
  Age: 44 Year
  Sex: Male
  Weight: 82 kg

DRUGS (18)
  1. MAGNEVIST [Suspect]
     Indication: NUCLEAR MAGNETIC RESONANCE IMAGING ABDOMINAL
     Dosage: TOTAL DAILY DOSE: 20 ML
     Route: 042
     Dates: start: 20061104, end: 20061104
  2. OMNISCAN [Suspect]
     Indication: NUCLEAR MAGNETIC RESONANCE IMAGING BRAIN
     Dosage: TOTAL DAILY DOSE: 15 ML
     Route: 042
     Dates: start: 20070327, end: 20070327
  3. LIPITOR [Concomitant]
  4. CYCLOSPORINE [Concomitant]
  5. CELLCEPT [Concomitant]
     Indication: IMMUNOSUPPRESSION
     Dosage: TOTAL DAILY DOSE: 1000 MG
     Route: 048
  6. ARANESP [Concomitant]
     Indication: ANAEMIA
  7. NEORAL [Concomitant]
     Indication: IMMUNOSUPPRESSION
     Dosage: TOTAL DAILY DOSE: 100 MG
  8. ALLOPURINOL [Concomitant]
     Indication: GOUT
     Dosage: TOTAL DAILY DOSE: 200 MG
     Route: 048
  9. ATENOLOL [Concomitant]
     Indication: HYPERTENSION
     Dosage: TOTAL DAILY DOSE: 10 MG
  10. ZETIA [Concomitant]
     Dosage: TOTAL DAILY DOSE: 10 MG
     Route: 048
  11. CALCIUM CARBONATE [Concomitant]
     Dosage: TOTAL DAILY DOSE: 3000 MG
     Route: 048
  12. PROTONIX [Concomitant]
     Dosage: TOTAL DAILY DOSE: 40 MG
     Route: 048
  13. SYNTHROID [Concomitant]
     Dosage: TOTAL DAILY DOSE: 50 ?G
     Route: 048
  14. LANTUS [Concomitant]
  15. CALCITRIOL [Concomitant]
     Dosage: TOTAL DAILY DOSE: 0.25 ?G
     Route: 048
  16. DARBEPOETIN [Concomitant]
     Dosage: AS USED: 100 ?G
     Route: 042
  17. SEVELAMER [Concomitant]
     Dosage: TOTAL DAILY DOSE: 1600 ?G
     Route: 048
  18. VANCOMYCIN [Concomitant]

REACTIONS (19)
  - ARTHRALGIA [None]
  - EXTREMITY CONTRACTURE [None]
  - FATIGUE [None]
  - JOINT RANGE OF MOTION DECREASED [None]
  - MUSCULAR WEAKNESS [None]
  - MUSCULOSKELETAL STIFFNESS [None]
  - NEPHROGENIC SYSTEMIC FIBROSIS [None]
  - OEDEMA [None]
  - OEDEMA PERIPHERAL [None]
  - PAIN [None]
  - PRURITUS [None]
  - RASH [None]
  - SKIN DISCOLOURATION [None]
  - SKIN FIBROSIS [None]
  - SKIN HYPERTROPHY [None]
  - SKIN INDURATION [None]
  - SKIN LESION [None]
  - SKIN PLAQUE [None]
  - SKIN TIGHTNESS [None]
